FAERS Safety Report 13840851 (Version 2)
Quarter: 2017Q3

REPORT INFORMATION
  Report Type: Report from Study
  Country: TW (occurrence: TW)
  Receive Date: 20170807
  Receipt Date: 20170829
  Transmission Date: 20171127
  Serious: Yes (Other)
  Sender: FDA-Public Use
  Company Number: TW-JNJFOC-20170800947

PATIENT
  Age: 68 Year
  Sex: Female
  Weight: 65 kg

DRUGS (3)
  1. STELARA [Suspect]
     Active Substance: USTEKINUMAB
     Indication: PSORIASIS
     Dosage: 4 WEEK LOADING DOSE
     Route: 058
     Dates: start: 20170629, end: 20170727
  2. TACROLIMUS. [Concomitant]
     Active Substance: TACROLIMUS
     Route: 061
     Dates: start: 20170601
  3. DAIVOBET [Concomitant]
     Active Substance: BETAMETHASONE DIPROPIONATE\CALCIPOTRIENE
     Route: 061
     Dates: start: 20170601, end: 20170622

REACTIONS (2)
  - Hepatocellular carcinoma [Not Recovered/Not Resolved]
  - Hepatic cirrhosis [Unknown]

NARRATIVE: CASE EVENT DATE: 2017
